FAERS Safety Report 6767649-2 (Version None)
Quarter: 2010Q2

REPORT INFORMATION
  Report Type: 
  Country: None (occurrence: None)
  Receive Date: 20100610
  Receipt Date: 20100603
  Transmission Date: 20101027
  Serious: Yes (Other)
  Sender: FDA-Public Use
  Company Number: DSA_43114_2010

PATIENT
  Sex: Female
  Weight: 39.9165 kg

DRUGS (5)
  1. XENAZINE [Suspect]
     Indication: TARDIVE DYSKINESIA
     Dosage: 12.5 MG QD ORAL
     Route: 048
     Dates: start: 20100428, end: 20100430
  2. DIAZEPAM [Concomitant]
  3. GABAPENTIN [Concomitant]
  4. LUNESTA [Concomitant]
  5. SPIRONOLACTONE [Concomitant]

REACTIONS (4)
  - CHILLS [None]
  - DYSPNOEA [None]
  - LETHARGY [None]
  - PARKINSONISM [None]
